FAERS Safety Report 18166183 (Version 1)
Quarter: 2020Q3

REPORT INFORMATION
  Report Type: Report from Study
  Country: NL (occurrence: NL)
  Receive Date: 20200819
  Receipt Date: 20200819
  Transmission Date: 20201103
  Serious: Yes (Other)
  Sender: FDA-Public Use
  Company Number: NL-TEVA-2020-NL-1816472

PATIENT
  Age: 42 Year
  Sex: Female

DRUGS (1)
  1. AJOVY [Suspect]
     Active Substance: FREMANEZUMAB-VFRM
     Indication: MIGRAINE
     Route: 058
     Dates: start: 20200710

REACTIONS (7)
  - Dyspnoea [Recovered/Resolved]
  - Pericarditis [Unknown]
  - Dyspnoea [Unknown]
  - Respiration abnormal [Unknown]
  - Feeling abnormal [Recovered/Resolved]
  - Arthralgia [Unknown]
  - Inflammatory marker increased [Unknown]

NARRATIVE: CASE EVENT DATE: 20200710
